FAERS Safety Report 5530423-9 (Version None)
Quarter: 2007Q4

REPORT INFORMATION
  Report Type: 
  Country: None (occurrence: None)
  Receive Date: 20071127
  Receipt Date: 20071127
  Transmission Date: 20080405
  Serious: No
  Sender: FDA-Public Use
  Company Number: None

PATIENT
  Age: 68 Year
  Sex: Male

DRUGS (1)
  1. KETOROLAC TROMETHAMINE [Suspect]
     Indication: PAIN
     Dosage: 15MG ONCE IM
     Route: 030
     Dates: start: 20070730, end: 20070730

REACTIONS (1)
  - RENAL FAILURE ACUTE [None]
